FAERS Safety Report 6826715-3 (Version None)
Quarter: 2010Q3

REPORT INFORMATION
  Report Type: 
  Country: None (occurrence: None)
  Receive Date: 20100709
  Receipt Date: 20100701
  Transmission Date: 20110219
  Serious: Yes (Hospitalization)
  Sender: FDA-Public Use
  Company Number: GXKR2010GB07336

PATIENT
  Age: 50 Year
  Sex: Male

DRUGS (11)
  1. DOXORUBICIN (NGX) [Suspect]
     Indication: PLASMABLASTIC LYMPHOMA
  2. VINCRISTINE (NGX) [Suspect]
     Indication: PLASMABLASTIC LYMPHOMA
  3. PREDNISOLONE (NGX) [Suspect]
     Indication: PLASMABLASTIC LYMPHOMA
  4. CYCLOPHOSPHAMIDE [Suspect]
     Indication: PLASMABLASTIC LYMPHOMA
     Route: 065
  5. ACYCLOVIR [Concomitant]
     Indication: HIV TEST POSITIVE
     Dosage: 400 MG, BID
  6. FLUCONAZOLE [Concomitant]
     Dosage: 50 MG, QD
  7. AZITHROMYCIN [Concomitant]
     Dosage: 1250 MG, QW
  8. COTRIM [Concomitant]
     Dosage: 960 MG, QD
  9. TENOFOVIR [Concomitant]
  10. EMTRICITABINE [Concomitant]
  11. DARUNAVIR [Concomitant]

REACTIONS (16)
  - AREFLEXIA [None]
  - ATAXIA [None]
  - BALANCE DISORDER [None]
  - COUGH [None]
  - CYTOMEGALOVIRUS CHORIORETINITIS [None]
  - CYTOMEGALOVIRUS INFECTION [None]
  - DIARRHOEA [None]
  - DYSPNOEA EXERTIONAL [None]
  - ESCHAR [None]
  - FEBRILE NEUTROPENIA [None]
  - HYPOTONIA [None]
  - MYCOBACTERIUM AVIUM COMPLEX INFECTION [None]
  - NEUTROPENIC SEPSIS [None]
  - PYREXIA [None]
  - RADICULOPATHY [None]
  - SKIN LESION [None]
